FAERS Safety Report 19315832 (Version 1)
Quarter: 2021Q2

REPORT INFORMATION
  Report Type: Spontaneous
  Country: CN (occurrence: CN)
  Receive Date: 20210527
  Receipt Date: 20210527
  Transmission Date: 20210717
  Serious: Yes (Other)
  Sender: FDA-Public Use
  Company Number: CN-BAYER-2021-147482

PATIENT
  Age: 64 Year
  Sex: Male
  Weight: 66 kg

DRUGS (1)
  1. AVELOX [Suspect]
     Active Substance: MOXIFLOXACIN HYDROCHLORIDE
     Indication: INTERVERTEBRAL DISCITIS
     Dosage: 1 DF, QD
     Route: 048
     Dates: start: 20210420, end: 20210429

REACTIONS (4)
  - Delirium [Recovered/Resolved]
  - Confusional state [Recovered/Resolved]
  - Off label use [None]
  - Altered state of consciousness [Recovered/Resolved]

NARRATIVE: CASE EVENT DATE: 20210420
